FAERS Safety Report 9877877 (Version 2)
Quarter: 2014Q1

REPORT INFORMATION
  Report Type: Spontaneous
  Country: JP (occurrence: JP)
  Receive Date: 20140206
  Receipt Date: 20140326
  Transmission Date: 20141002
  Serious: Yes (Other)
  Sender: FDA-Public Use
  Company Number: JP-BAYER-2014-015826

PATIENT
  Age: 38 Year
  Sex: Female
  Weight: 52 kg

DRUGS (6)
  1. MAGNEVIST [Suspect]
     Indication: NUCLEAR MAGNETIC RESONANCE IMAGING ABDOMINAL
     Dosage: 10 ML (1ML/S FOR ABOUT 10 SECONDS), ONCE
     Route: 042
     Dates: start: 20140114, end: 20140114
  2. MAGNEVIST [Suspect]
     Indication: OVARIAN CANCER
  3. ANHIBA [Suspect]
     Indication: ANTIPYRESIS
     Dosage: UNK UNK, PRN
     Route: 054
  4. ANHIBA [Suspect]
     Indication: ANALGESIC THERAPY
  5. CISPLATIN [Suspect]
     Dosage: DAILY DOSE 100 MG
     Route: 041
     Dates: start: 20131224, end: 20131224
  6. ZOSYN [Suspect]
     Indication: INFECTION PROPHYLAXIS
     Dosage: DAILY DOSE 13.5 G
     Route: 041
     Dates: start: 20140115, end: 20140120

REACTIONS (6)
  - Stevens-Johnson syndrome [Recovered/Resolved with Sequelae]
  - Oral mucosa erosion [Recovered/Resolved with Sequelae]
  - Abnormal sensation in eye [Recovered/Resolved with Sequelae]
  - Erythema [Recovered/Resolved with Sequelae]
  - Skin erosion [Recovered/Resolved with Sequelae]
  - Epidermal necrosis [Recovered/Resolved with Sequelae]
